FAERS Safety Report 5630123-0 (Version None)
Quarter: 2008Q1

REPORT INFORMATION
  Report Type: 
  Country: None (occurrence: None)
  Receive Date: 20080214
  Receipt Date: 20080204
  Transmission Date: 20080703
  Serious: Yes (Death)
  Sender: FDA-Public Use
  Company Number: 2008-01213

PATIENT
  Age: 65 Year
  Sex: Male

DRUGS (14)
  1. HEPARIN SODIUM [Suspect]
  2. CLONIDINE [Suspect]
  3. ALBUTEROL [Suspect]
  4. ACYCLOVIR [Suspect]
  5. OXYCODONE HCL AND ACETAMINOPHEN [Suspect]
  6. BUPROPION HYDROCHLORIDE [Suspect]
  7. HALOPERIDOL [Suspect]
  8. RISPERIDONE [Suspect]
  9. METAXALONE [Suspect]
  10. ESCITALOPRAM [Suspect]
  11. CORTICOSTEROIDS() [Suspect]
  12. METHADONE HCL [Suspect]
  13. VANCOMYCIN [Suspect]
  14. LAMOTRIGINE [Suspect]

REACTIONS (1)
  - DEATH [None]
